FAERS Safety Report 17521332 (Version 1)
Quarter: 2020Q1

REPORT INFORMATION
  Report Type: Spontaneous
  Country: US (occurrence: US)
  Receive Date: 20200302
  Receipt Date: 20200302
  Transmission Date: 20200409
  Serious: Yes (Death)
  Sender: FDA-Public Use
  Company Number: None

PATIENT
  Age: 67 Year
  Sex: Female

DRUGS (1)
  1. CYCLOSPORINE CAP 25MG MOD [Suspect]
     Active Substance: CYCLOSPORINE
     Indication: RENAL TRANSPLANT
     Route: 048
     Dates: start: 201711, end: 202002

REACTIONS (1)
  - Death [None]

NARRATIVE: CASE EVENT DATE: 20200302
